FAERS Safety Report 9844730 (Version 1)
Quarter: 2014Q1

REPORT INFORMATION
  Report Type: Spontaneous
  Country: DE (occurrence: None)
  Receive Date: 20140122
  Receipt Date: 20140122
  Transmission Date: 20141002
  Serious: Yes (Hospitalization)
  Sender: FDA-Public Use
  Company Number: IMP_06938_2014

PATIENT
  Age: 57 Year
  Sex: 0

DRUGS (2)
  1. DIVALPROEX [Suspect]
     Indication: SCHIZOAFFECTIVE DISORDER
  2. LORAZEPAM (LORAZEPAM) [Suspect]
     Dosage: UP TO 6 MG  (DOSE RAISED)

REACTIONS (6)
  - Hyperammonaemic encephalopathy [None]
  - Drug withdrawal syndrome [None]
  - Somnolence [None]
  - Stupor [None]
  - Overdose [None]
  - Carnitine deficiency [None]
